FAERS Safety Report 6296797-9 (Version None)
Quarter: 2009Q3

REPORT INFORMATION
  Report Type: 
  Country: None (occurrence: None)
  Receive Date: 20090804
  Receipt Date: 20090722
  Transmission Date: 20100115
  Serious: Yes (Other)
  Sender: FDA-Public Use
  Company Number: US-ROCHE-645903

PATIENT
  Sex: Male

DRUGS (2)
  1. PEGASYS [Suspect]
     Indication: HEPATITIS C
     Dosage: COMPLETED 48 WEEKS OF THERAPY
     Route: 065
  2. COPEGUS [Suspect]
     Indication: HEPATITIS C
     Dosage: COMPLETED 48 WEEKS OF THERAPY.
     Route: 065

REACTIONS (1)
  - EOSINOPHILIC COLITIS [None]
